FAERS Safety Report 9867653 (Version 2)
Quarter: 2014Q1

REPORT INFORMATION
  Report Type: Spontaneous
  Country: CA (occurrence: CA)
  Receive Date: 20140204
  Receipt Date: 20140207
  Transmission Date: 20141002
  Serious: Yes (Hospitalization, Other)
  Sender: FDA-Public Use
  Company Number: CA-PFIZER INC-2014029782

PATIENT
  Age: 30 Year
  Sex: Male

DRUGS (3)
  1. MORPHINE SULFATE [Suspect]
     Dosage: UNK
     Route: 042
  2. IPRATROPIUM [Concomitant]
     Dosage: UNK
  3. SALBUTAMOL [Concomitant]

REACTIONS (8)
  - Substance abuse [Unknown]
  - Febrile neutropenia [Recovered/Resolved]
  - Chills [Unknown]
  - Diarrhoea [Unknown]
  - Pyrexia [Recovered/Resolved]
  - Abdominal pain [Recovered/Resolved]
  - Vomiting [Unknown]
  - Nausea [Unknown]
